FAERS Safety Report 9052003 (Version 1)
Quarter: 2013Q1

REPORT INFORMATION
  Report Type: Spontaneous
  Country: US (occurrence: None)
  Receive Date: 20130129
  Receipt Date: 20130129
  Transmission Date: 20140127
  Serious: Yes (Disabling, Other)
  Sender: FDA-Public Use
  Company Number: None

PATIENT
  Age: 17 Year
  Sex: Female
  Weight: 47.63 kg

DRUGS (1)
  1. AMPHETAMINE SALTS [Suspect]
     Indication: ATTENTION DEFICIT/HYPERACTIVITY DISORDER
     Dates: start: 20120819, end: 20120913

REACTIONS (7)
  - Frustration [None]
  - Therapeutic response unexpected with drug substitution [None]
  - Product substitution issue [None]
  - Impulsive behaviour [None]
  - Sensory disturbance [None]
  - Mood altered [None]
  - Hearing impaired [None]
